FAERS Safety Report 7051713-7 (Version None)
Quarter: 2010Q4

REPORT INFORMATION
  Report Type: 
  Country: None (occurrence: None)
  Receive Date: 20101018
  Receipt Date: 20101018
  Transmission Date: 20110411
  Serious: Yes (Hospitalization)
  Sender: FDA-Public Use
  Company Number: None

PATIENT
  Age: 62 Year
  Sex: Female
  Weight: 83.9154 kg

DRUGS (2)
  1. FOSAMAX [Suspect]
     Indication: OSTEOPENIA
     Dates: start: 20070101, end: 20100629
  2. FOSAMAX [Suspect]
     Indication: OSTEOPOROSIS
     Dates: start: 20070101, end: 20100629

REACTIONS (6)
  - BONE DENSITY DECREASED [None]
  - FIBULA FRACTURE [None]
  - MEDICAL DEVICE REMOVAL [None]
  - RIB FRACTURE [None]
  - TIBIA FRACTURE [None]
  - WOUND INFECTION STAPHYLOCOCCAL [None]
